FAERS Safety Report 17877721 (Version 1)
Quarter: 2020Q2

REPORT INFORMATION
  Report Type: Report from Study
  Country: US (occurrence: US)
  Receive Date: 20200609
  Receipt Date: 20200609
  Transmission Date: 20200714
  Serious: Yes (Hospitalization)
  Sender: FDA-Public Use
  Company Number: US-BAUSCH-BL-2020-016173

PATIENT
  Age: 63 Year
  Sex: Female

DRUGS (3)
  1. LACTULOSE. [Suspect]
     Active Substance: LACTULOSE
     Indication: PRODUCT USED FOR UNKNOWN INDICATION
     Route: 065
     Dates: start: 201901
  2. XIFAXAN [Suspect]
     Active Substance: RIFAXIMIN
     Indication: HEPATIC CIRRHOSIS
     Route: 048
  3. ALPRAZOLAM. [Concomitant]
     Active Substance: ALPRAZOLAM
     Indication: PRODUCT USED FOR UNKNOWN INDICATION
     Dosage: INSTRUCTION-TAKE 1 TABLET BY MOUTH TWICE DAILY
     Route: 048

REACTIONS (11)
  - Hepatic steatosis [Unknown]
  - Confusional state [Unknown]
  - Ammonia increased [Unknown]
  - Regurgitation [Not Recovered/Not Resolved]
  - Oedema peripheral [Unknown]
  - Gastrooesophageal reflux disease [Not Recovered/Not Resolved]
  - Memory impairment [Unknown]
  - Dyspepsia [Not Recovered/Not Resolved]
  - Hypersensitivity [Unknown]
  - Diverticulitis [Unknown]
  - Hepatic enzyme abnormal [Unknown]

NARRATIVE: CASE EVENT DATE: 2019
